FAERS Safety Report 21098386 (Version 3)
Quarter: 2023Q2

REPORT INFORMATION
  Report Type: Report from Study
  Country: FR (occurrence: None)
  Receive Date: 20220719
  Receipt Date: 20230403
  Transmission Date: 20230721
  Serious: Yes (Other)
  Sender: FDA-Public Use
  Company Number: FR-ROCHE-3141235

PATIENT
  Age: 38 Year
  Sex: Female
  Weight: 63.7 kg

DRUGS (8)
  1. ATEZOLIZUMAB [Suspect]
     Active Substance: ATEZOLIZUMAB
     Indication: Soft tissue sarcoma
     Route: 041
     Dates: start: 20220629, end: 20220629
  2. ATEZOLIZUMAB [Suspect]
     Active Substance: ATEZOLIZUMAB
     Route: 041
     Dates: start: 20220726, end: 20220808
  3. COBIMETINIB [Suspect]
     Active Substance: COBIMETINIB
     Indication: Soft tissue sarcoma
     Dosage: 21 DAYS ON / 7 DAYS OFF,?MOST RECENT DOSE BEFORE SAE: 12/JUL/2022
     Route: 048
     Dates: start: 20220629, end: 20220712
  4. COBIMETINIB [Suspect]
     Active Substance: COBIMETINIB
     Dosage: 21 DAYS ON / 7?DAYS OFF
     Route: 048
     Dates: start: 20220726, end: 20220810
  5. PAROXETINE HYDROCHLORIDE [Concomitant]
     Active Substance: PAROXETINE HYDROCHLORIDE
     Route: 048
     Dates: start: 2021
  6. DONORMYL [Concomitant]
     Route: 048
     Dates: start: 2021
  7. OXAZEPAM [Concomitant]
     Active Substance: OXAZEPAM
     Route: 048
     Dates: start: 2021
  8. DOXYCYCLINE [Concomitant]
     Active Substance: DOXYCYCLINE
     Indication: Apnoea
     Route: 048
     Dates: start: 20220713

REACTIONS (2)
  - Blood creatine phosphokinase increased [Recovered/Resolved]
  - Dermatitis acneiform [Recovered/Resolved]

NARRATIVE: CASE EVENT DATE: 20220713
